FAERS Safety Report 10480864 (Version 2)
Quarter: 2015Q2

REPORT INFORMATION
  Report Type: Spontaneous
  Country: JP (occurrence: None)
  Receive Date: 20140925
  Receipt Date: 20150403
  Transmission Date: 20150821
  Serious: Yes (Hospitalization)
  Sender: FDA-Public Use
  Company Number: 2014-002799

PATIENT
  Age: 89 Year
  Sex: Female

DRUGS (6)
  1. ARICEPT [Concomitant]
     Active Substance: DONEPEZIL HYDROCHLORIDE
  2. DIART (AZOSEMIDE) [Concomitant]
  3. ONEALFA [Concomitant]
     Active Substance: ALFACALCIDOL
  4. MICARDIS [Concomitant]
     Active Substance: TELMISARTAN
  5. ACTONEL [Suspect]
     Active Substance: RISEDRONATE SODIUM
     Indication: OSTEOPOROSIS
     Route: 048
     Dates: start: 20131112
  6. MEMANTINE HYDROCHLORIDE [Concomitant]
     Active Substance: MEMANTINE HYDROCHLORIDE

REACTIONS (2)
  - Pneumonia [None]
  - Back pain [None]

NARRATIVE: CASE EVENT DATE: 20131113
